FAERS Safety Report 4896244-5 (Version None)
Quarter: 2006Q1

REPORT INFORMATION
  Report Type: 
  Country: None (occurrence: None)
  Receive Date: 20060126
  Receipt Date: 20060114
  Transmission Date: 20060701
  Serious: Yes (Other)
  Sender: FDA-Public Use
  Company Number: 2006009178

PATIENT
  Sex: Female

DRUGS (1)
  1. DEPO-PROVERA [Suspect]
     Indication: ILL-DEFINED DISORDER
     Dosage: 150 MG (150 MG), INTRAMUSCULAR
     Route: 030
     Dates: start: 20051008, end: 20051008

REACTIONS (6)
  - ANXIETY [None]
  - CHEST DISCOMFORT [None]
  - CONDITION AGGRAVATED [None]
  - DYSPNOEA [None]
  - HOT FLUSH [None]
  - SUPRAVENTRICULAR TACHYCARDIA [None]
